FAERS Safety Report 5455517-8 (Version None)
Quarter: 2007Q3

REPORT INFORMATION
  Report Type: 
  Country: None (occurrence: None)
  Receive Date: 20070918
  Receipt Date: 20070910
  Transmission Date: 20080115
  Serious: Yes (Hospitalization)
  Sender: FDA-Public Use
  Company Number: GB-BAYER-200710969BNE

PATIENT
  Sex: Female

DRUGS (2)
  1. ASPIRIN [Suspect]
     Route: 048
     Dates: start: 20060508
  2. PLAVIX [Suspect]
     Dates: start: 20060508

REACTIONS (2)
  - ANGINA PECTORIS [None]
  - CONTUSION [None]
